FAERS Safety Report 25568160 (Version 1)
Quarter: 2025Q3

REPORT INFORMATION
  Report Type: Spontaneous
  Country: GB (occurrence: GB)
  Receive Date: 20250716
  Receipt Date: 20250716
  Transmission Date: 20251021
  Serious: Yes (Other)
  Sender: BIOGEN
  Company Number: GB-BIOGEN-2025BI01316881

PATIENT
  Sex: Female

DRUGS (4)
  1. TYSABRI [Suspect]
     Active Substance: NATALIZUMAB
     Indication: Product used for unknown indication
     Route: 050
     Dates: start: 2023
  2. TYSABRI [Suspect]
     Active Substance: NATALIZUMAB
     Route: 050
     Dates: start: 2020, end: 2021
  3. KESIMPTA [Concomitant]
     Active Substance: OFATUMUMAB
     Indication: Relapsing-remitting multiple sclerosis
     Route: 050
     Dates: start: 202208, end: 20230704
  4. KESIMPTA [Concomitant]
     Active Substance: OFATUMUMAB
     Route: 050
     Dates: start: 20240327

REACTIONS (1)
  - Caesarean section [Recovered/Resolved]

NARRATIVE: CASE EVENT DATE: 20240313
